FAERS Safety Report 7413258-1 (Version None)
Quarter: 2011Q2

REPORT INFORMATION
  Report Type: 
  Country: None (occurrence: None)
  Receive Date: 20110413
  Receipt Date: 20110411
  Transmission Date: 20111010
  Serious: Yes (Other)
  Sender: FDA-Public Use
  Company Number: CA-ABBOTT-11P-028-0715140-00

PATIENT
  Sex: Male
  Weight: 61.29 kg

DRUGS (4)
  1. HUMIRA [Suspect]
     Indication: PSORIATIC ARTHROPATHY
     Route: 058
     Dates: start: 20110115, end: 20110201
  2. PANTOLOC [Concomitant]
     Indication: DYSPEPSIA
     Route: 048
  3. PLAQUENIL [Concomitant]
     Indication: ARTHRITIS
     Route: 048
     Dates: start: 19960101
  4. RAMIPRIL [Concomitant]
     Indication: BLOOD PRESSURE
     Route: 048
     Dates: end: 20110301

REACTIONS (6)
  - GLOMERULAR FILTRATION RATE DECREASED [None]
  - FLUID RETENTION [None]
  - RASH [None]
  - URINE OUTPUT DECREASED [None]
  - OEDEMA PERIPHERAL [None]
  - PSORIASIS [None]
